FAERS Safety Report 12951987 (Version 2)
Quarter: 2017Q1

REPORT INFORMATION
  Report Type: Spontaneous
  Country: CZ (occurrence: CZ)
  Receive Date: 20161117
  Receipt Date: 20170131
  Transmission Date: 20170428
  Serious: Yes (Death)
  Sender: FDA-Public Use
  Company Number: CZ-TEVA-710401ROM

PATIENT
  Age: 18 Year
  Sex: Male

DRUGS (4)
  1. MORPHINE [Suspect]
     Active Substance: MORPHINE
  2. TRAMADOL. [Suspect]
     Active Substance: TRAMADOL
  3. FENTANYL. [Suspect]
     Active Substance: FENTANYL
     Indication: DRUG ABUSE
     Route: 065
  4. ALCOHOL. [Suspect]
     Active Substance: ALCOHOL

REACTIONS (4)
  - Aspiration [Fatal]
  - Drug abuse [Fatal]
  - Alcohol poisoning [Fatal]
  - Toxicity to various agents [Fatal]
